FAERS Safety Report 6676216-0 (Version None)
Quarter: 2010Q2

REPORT INFORMATION
  Report Type: 
  Country: None (occurrence: None)
  Receive Date: 20100412
  Receipt Date: 20100401
  Transmission Date: 20101027
  Serious: Yes (Other)
  Sender: FDA-Public Use
  Company Number: US-JNJFOC-20100401255

PATIENT
  Sex: Female
  Weight: 100.7 kg

DRUGS (7)
  1. FENTANYL CITRATE [Suspect]
     Indication: PAIN
     Route: 062
  2. FENTANYL CITRATE [Suspect]
     Indication: PAIN
     Route: 062
  3. POTASSIUM [Concomitant]
     Indication: BLOOD POTASSIUM DECREASED
     Route: 048
  4. DIAZEPAM [Concomitant]
     Indication: ANXIETY
     Route: 048
  5. SYNTHROID [Concomitant]
     Indication: HYPOTHYROIDISM
     Route: 048
  6. SOMA [Concomitant]
     Indication: SLEEP DISORDER
     Route: 048
  7. REQUIP [Concomitant]
     Indication: RESTLESS LEGS SYNDROME
     Route: 048

REACTIONS (12)
  - ADVERSE DRUG REACTION [None]
  - ASTHMA [None]
  - FALL [None]
  - HYPERTENSION [None]
  - INFLUENZA LIKE ILLNESS [None]
  - NEUROPATHY PERIPHERAL [None]
  - OEDEMA PERIPHERAL [None]
  - OXYGEN SATURATION DECREASED [None]
  - PERIPHERAL COLDNESS [None]
  - PRODUCT QUALITY ISSUE [None]
  - SLEEP DISORDER [None]
  - WITHDRAWAL SYNDROME [None]
